FAERS Safety Report 5761150-0 (Version None)
Quarter: 2008Q2

REPORT INFORMATION
  Report Type: 
  Country: None (occurrence: None)
  Receive Date: 20080606
  Receipt Date: 20080528
  Transmission Date: 20081010
  Serious: Yes (Other)
  Sender: FDA-Public Use
  Company Number: A0731589A

PATIENT
  Age: 55 Year
  Sex: Male

DRUGS (1)
  1. EPIVIR [Suspect]
     Indication: HIV INFECTION
     Dosage: 300MG TWICE PER DAY
     Route: 048
     Dates: start: 20020101, end: 20070101

REACTIONS (2)
  - MITOCHONDRIAL CYTOPATHY [None]
  - MITOCHONDRIAL DNA DEPLETION [None]
